FAERS Safety Report 16726308 (Version 1)
Quarter: 2019Q3

REPORT INFORMATION
  Report Type: Report from Study
  Country: DE (occurrence: DE)
  Receive Date: 20190821
  Receipt Date: 20190821
  Transmission Date: 20191005
  Serious: Yes (Other)
  Sender: FDA-Public Use
  Company Number: DE-GLAXOSMITHKLINE-DE2003GSK000008

PATIENT
  Age: 67 Year
  Sex: Female
  Weight: 80 kg

DRUGS (35)
  1. DIMETINDENE MALEATE [Suspect]
     Active Substance: DIMETHINDENE MALEATE
     Indication: PREMEDICATION
     Dosage: 8 ML, SINGLE
     Route: 042
     Dates: start: 20010910, end: 20010910
  2. RANITIC [Suspect]
     Active Substance: RANITIDINE HYDROCHLORIDE
     Indication: PRODUCT USED FOR UNKNOWN INDICATION
     Dosage: 100 ML, SINGLE
     Route: 042
     Dates: start: 20010910, end: 20010910
  3. NORMABRAIN [Suspect]
     Active Substance: PIRACETAM
     Indication: PRODUCT USED FOR UNKNOWN INDICATION
     Dosage: UNK
     Route: 048
     Dates: start: 20010910
  4. RINGERS SOLUTION [Concomitant]
     Active Substance: CALCIUM CHLORIDE\POTASSIUM CHLORIDE\SODIUM CHLORIDE
     Dosage: UNK
     Route: 042
     Dates: start: 20010904, end: 20010904
  5. RINGERS SOLUTION [Concomitant]
     Active Substance: CALCIUM CHLORIDE\POTASSIUM CHLORIDE\SODIUM CHLORIDE
     Dosage: UNK
     Route: 042
     Dates: start: 20010910, end: 20010910
  6. NAVOBAN [Suspect]
     Active Substance: TROPISETRON HYDROCHLORIDE
     Indication: PROPHYLAXIS OF NAUSEA AND VOMITING
     Dosage: 2 MG, SINGLE
     Route: 042
     Dates: start: 20010910, end: 20010910
  7. PROPOFOL. [Suspect]
     Active Substance: PROPOFOL
     Indication: STUPOR
     Dosage: UNK
     Route: 042
     Dates: start: 20010910, end: 20010910
  8. BEPANTHEN (DEXPANTHENOL) [Suspect]
     Active Substance: DEXPANTHENOL
     Indication: PRODUCT USED FOR UNKNOWN INDICATION
     Dosage: 2 DF, QD
     Route: 042
  9. CALCIUM BETA [Concomitant]
     Indication: BLOOD CALCIUM DECREASED
     Dosage: UNK, IRD
     Route: 048
  10. ATROPINE. [Suspect]
     Active Substance: ATROPINE
     Indication: SURGERY
     Dosage: .25 MG, SINGLE
     Route: 042
     Dates: start: 20010904, end: 20010904
  11. PROPAFENONE. [Suspect]
     Active Substance: PROPAFENONE
     Dosage: 150 MG, BID
     Route: 048
     Dates: start: 20010904, end: 20010909
  12. NOVALGIN (DIPYRONE) [Suspect]
     Active Substance: DIPYRONE
     Indication: PAIN
     Dosage: .25 G, SINGLE
     Route: 042
     Dates: start: 20010904, end: 20010904
  13. RYTMONORM [Suspect]
     Active Substance: PROPAFENONE
     Indication: ARRHYTHMIA
     Dosage: 150 MG, BID
     Route: 048
     Dates: start: 20010910
  14. DIGITOXIN [Suspect]
     Active Substance: DIGITOXIN
     Dosage: .07 MG, QD
     Route: 048
     Dates: start: 20010904
  15. FENTANYL. [Suspect]
     Active Substance: FENTANYL
     Indication: STUPOR
     Dosage: UNK
     Route: 042
     Dates: start: 20010910, end: 20010910
  16. ATROPINE. [Suspect]
     Active Substance: ATROPINE
     Dosage: .25 MG, SINGLE
     Route: 042
     Dates: start: 20010910, end: 20010910
  17. PIRACETAM [Suspect]
     Active Substance: PIRACETAM
     Dosage: 1 DF, BID
     Route: 048
     Dates: start: 20010904, end: 20010909
  18. MONO-EMBOLEX [Suspect]
     Active Substance: CERTOPARIN SODIUM
     Indication: THROMBOSIS PROPHYLAXIS
     Dosage: .5 ML, SINGLE
     Route: 058
     Dates: start: 20010910, end: 20010910
  19. MIDAZOLAM [Suspect]
     Active Substance: MIDAZOLAM HYDROCHLORIDE
     Indication: STUPOR
     Dosage: UNK
     Route: 042
     Dates: start: 20010910, end: 20010910
  20. PIRACETAM [Suspect]
     Active Substance: PIRACETAM
     Indication: PRODUCT USED FOR UNKNOWN INDICATION
     Dosage: UNK, IRD
     Route: 048
     Dates: end: 20010903
  21. SUFENTA [Suspect]
     Active Substance: SUFENTANIL CITRATE
     Indication: STUPOR
     Dosage: UNK
     Route: 042
     Dates: start: 20010910, end: 20010910
  22. SPIZEF (CEFOTIAM HYDROCHLORIDE) [Suspect]
     Active Substance: CEFOTIAM HYDROCHLORIDE
     Indication: PRODUCT USED FOR UNKNOWN INDICATION
     Dosage: 2 G, TID
     Route: 042
  23. REMIFENTANIL [Suspect]
     Active Substance: REMIFENTANIL
     Indication: STUPOR
     Dosage: .45 G, SINGLE
     Route: 042
     Dates: start: 20010904, end: 20010904
  24. NEOSTIGMINE. [Suspect]
     Active Substance: NEOSTIGMINE METHYLSULFATE
     Indication: PRODUCT USED FOR UNKNOWN INDICATION
     Dosage: 2DF/DAY
     Route: 042
  25. ISICOM [Suspect]
     Active Substance: CARBIDOPA\LEVODOPA
     Indication: PARKINSON^S DISEASE
     Dosage: UNK
     Route: 048
     Dates: end: 20010903
  26. SUPRATONIN [Suspect]
     Active Substance: AMEZINIUM METILSULFATE
     Indication: PRODUCT USED FOR UNKNOWN INDICATION
     Dosage: 2.5 MG, SINGLE
     Route: 042
     Dates: start: 20010910, end: 20010910
  27. NACOM (CARBIDOPA + LEVODOPA) [Suspect]
     Active Substance: CARBIDOPA\LEVODOPA
     Indication: PARKINSON^S DISEASE
     Dosage: 50 MG, TID
     Route: 048
     Dates: start: 20010910
  28. CISATRACURIUM BESYLATE. [Suspect]
     Active Substance: CISATRACURIUM BESYLATE
     Indication: STUPOR
     Dosage: UNK
     Route: 042
     Dates: start: 20010910, end: 20010910
  29. ISICOM [Suspect]
     Active Substance: CARBIDOPA\LEVODOPA
     Dosage: 50 MG, TID
     Route: 048
     Dates: start: 20010904, end: 20010909
  30. THIOPENTAL [Suspect]
     Active Substance: THIOPENTAL
     Indication: STUPOR
     Dosage: 250 ML, SINGLE
     Route: 042
     Dates: start: 20010904, end: 20010904
  31. NAROPIN [Suspect]
     Active Substance: ROPIVACAINE HYDROCHLORIDE
     Indication: STUPOR
     Dosage: UNK
     Route: 042
     Dates: start: 20010910, end: 20010910
  32. KETAMINE [Suspect]
     Active Substance: KETAMINE
     Indication: STUPOR
     Dosage: UNK
     Route: 042
     Dates: start: 20010910, end: 20010910
  33. JONOSTERIL [Concomitant]
     Dosage: 2500ML/DAY
     Route: 042
     Dates: start: 20010910
  34. PROPAFENONE. [Suspect]
     Active Substance: PROPAFENONE
     Indication: ARRHYTHMIA
     Dosage: UNK, IRD
     Route: 048
     Dates: end: 20010903
  35. DIGITOXIN [Suspect]
     Active Substance: DIGITOXIN
     Indication: CARDIAC FAILURE
     Dosage: UNK
     Route: 048
     Dates: end: 20010903

REACTIONS (8)
  - Rash macular [Recovering/Resolving]
  - Erythema [Recovering/Resolving]
  - Toxic epidermal necrolysis [Recovering/Resolving]
  - Blister [Recovering/Resolving]
  - Stevens-Johnson syndrome [Recovering/Resolving]
  - Pyrexia [Recovered/Resolved]
  - Petechiae [Recovering/Resolving]
  - Hysterectomy [Unknown]

NARRATIVE: CASE EVENT DATE: 20010910
